FAERS Safety Report 14577155 (Version 1)
Quarter: 2018Q1

REPORT INFORMATION
  Report Type: Spontaneous
  Country: US (occurrence: US)
  Receive Date: 20180225
  Receipt Date: 20180225
  Transmission Date: 20180509
  Serious: Yes (Hospitalization)
  Sender: FDA-Public Use
  Company Number: None

PATIENT
  Age: 71 Year
  Sex: Female

DRUGS (1)
  1. METHOTREXATE SDV 25MG/ML [Suspect]
     Active Substance: METHOTREXATE
     Dosage: 50MG/2ML 0.6ML  QWEEK SQ
     Route: 058
     Dates: start: 20170104

REACTIONS (2)
  - Viral infection [None]
  - Pulmonary thrombosis [None]

NARRATIVE: CASE EVENT DATE: 20170219
